FAERS Safety Report 11905731 (Version 1)
Quarter: 2016Q1

REPORT INFORMATION
  Report Type: Spontaneous
  Country: US (occurrence: US)
  Receive Date: 20160110
  Receipt Date: 20160110
  Transmission Date: 20160526
  Serious: No
  Sender: FDA-Public Use
  Company Number: US-AMGEN-USASP2016001172

PATIENT
  Age: 60 Year
  Sex: Female

DRUGS (12)
  1. VITAMIN D3 [Concomitant]
     Active Substance: CHOLECALCIFEROL
  2. VITAMINS WITH MINERALS [Concomitant]
     Active Substance: MINERALS\VITAMINS
  3. ENBREL [Suspect]
     Active Substance: ETANERCEPT
     Indication: PSORIATIC ARTHROPATHY
     Dosage: 50 MG, QWK
     Route: 058
  4. COUMADINE [Concomitant]
     Active Substance: WARFARIN SODIUM
  5. ASPIRIN 81 [Concomitant]
     Active Substance: ASPIRIN
  6. AMITRIPTYLINE HCL [Concomitant]
     Active Substance: AMITRIPTYLINE
  7. FOLIC ACID. [Concomitant]
     Active Substance: FOLIC ACID
  8. PRAVASTATIN SODIUM. [Concomitant]
     Active Substance: PRAVASTATIN SODIUM
  9. MOEXIPRIL HCL [Concomitant]
     Active Substance: MOEXIPRIL HYDROCHLORIDE
  10. LANSOPRAZOLE. [Concomitant]
     Active Substance: LANSOPRAZOLE
  11. METHOTREXATE [Concomitant]
     Active Substance: METHOTREXATE
  12. CITALOPRAM HYDROBROMIDE. [Concomitant]
     Active Substance: CITALOPRAM HYDROBROMIDE

REACTIONS (4)
  - Headache [Unknown]
  - Arthralgia [Unknown]
  - Condition aggravated [Unknown]
  - Cough [Unknown]

NARRATIVE: CASE EVENT DATE: 20160104
